FAERS Safety Report 7049815-4 (Version None)
Quarter: 2010Q4

REPORT INFORMATION
  Report Type: 
  Country: None (occurrence: None)
  Receive Date: 20101018
  Receipt Date: 20101004
  Transmission Date: 20110411
  Serious: Yes (Hospitalization)
  Sender: FDA-Public Use
  Company Number: US-BAYER-201032524NA

PATIENT
  Age: 47 Year
  Sex: Female
  Weight: 109 kg

DRUGS (1)
  1. YASMIN [Suspect]
     Indication: ORAL CONTRACEPTION
     Dosage: TABLETS 28?S
     Route: 048
     Dates: start: 20030410, end: 20050905

REACTIONS (1)
  - GALLBLADDER DISORDER [None]
